FAERS Safety Report 15653043 (Version 2)
Quarter: 2018Q4

REPORT INFORMATION
  Report Type: Spontaneous
  Country: US (occurrence: US)
  Receive Date: 20181123
  Receipt Date: 20181217
  Transmission Date: 20190205
  Serious: Yes (Other)
  Sender: FDA-Public Use
  Company Number: US-NOVOPROD-609039

PATIENT
  Age: 59 Year
  Sex: Female

DRUGS (3)
  1. LEVEMIR [Suspect]
     Active Substance: INSULIN DETEMIR
     Indication: TYPE 2 DIABETES MELLITUS
     Dosage: UNK
     Route: 058
     Dates: start: 201806
  2. NOVOLOG [Suspect]
     Active Substance: INSULIN ASPART
     Indication: TYPE 2 DIABETES MELLITUS
     Dosage: 38 U(SLIDING SCALE)
     Route: 058
     Dates: start: 201806
  3. NOVOLOG [Suspect]
     Active Substance: INSULIN ASPART
     Dosage: 200 U
     Route: 058
     Dates: start: 20180611

REACTIONS (3)
  - Device malfunction [Unknown]
  - Blood glucose decreased [Recovered/Resolved]
  - Incorrect dose administered by device [Unknown]

NARRATIVE: CASE EVENT DATE: 20180611
